FAERS Safety Report 9682788 (Version 2)
Quarter: 2013Q4

REPORT INFORMATION
  Report Type: Spontaneous
  Country: CH (occurrence: CH)
  Receive Date: 20131112
  Receipt Date: 20131222
  Transmission Date: 20140711
  Serious: Yes (Other)
  Sender: FDA-Public Use
  Company Number: PHHY2013CH126758

PATIENT
  Sex: Male

DRUGS (9)
  1. RASILAMLO [Suspect]
     Indication: HYPERTENSION
     Dosage: 1 DF (300 MG ALIS, 10 MG AMLO), QD (EVERY MORNING)
  2. COVERSUM COMBI [Concomitant]
     Dosage: 1 DF, QD (IN THE MORNING)
  3. PLAVIX [Concomitant]
     Dosage: 75 MG, UNK
  4. ASPIRIN CARDIO [Concomitant]
     Dosage: 100 UKN, UNK
  5. XARELTO [Concomitant]
     Indication: HIP SURGERY
     Dosage: UNK UKN, UNK
  6. NEBILET [Concomitant]
     Dosage: 5 MG, QD (IN THE EVENING)
  7. NIFEDIPIN [Concomitant]
     Dosage: UNK UKN, UNK
  8. SORTIS [Concomitant]
     Dosage: 20 UKN, UNK
  9. POTASSIUM                          /00209301/ [Concomitant]
     Dosage: UNK UKN, UNK

REACTIONS (8)
  - Diverticulitis [Unknown]
  - Weight decreased [Unknown]
  - Vertigo [Unknown]
  - Sleep disorder [Unknown]
  - Disturbance in attention [Unknown]
  - Libido disorder [Unknown]
  - Blood pressure abnormal [Unknown]
  - Visual impairment [Unknown]
